FAERS Safety Report 5096950-6 (Version None)
Quarter: 2006Q3

REPORT INFORMATION
  Report Type: 
  Country: None (occurrence: None)
  Receive Date: 20060831
  Receipt Date: 20060831
  Transmission Date: 20061208
  Serious: Yes (Hospitalization, Other)
  Sender: FDA-Public Use
  Company Number: None

PATIENT
  Age: 72 Year
  Sex: Female
  Weight: 59.8748 kg

DRUGS (17)
  1. IOHEXOL 350 MG1/ML AMERSHAM HEALTH [Suspect]
     Indication: CATHETERISATION CARDIAC
     Dosage: 150 ML  ONCE IV
     Route: 042
     Dates: start: 20051212, end: 20051212
  2. BUSPIRONE HCL [Concomitant]
  3. ACETYLCYSTEINE [Concomitant]
  4. NITROGLYN 2% OINTMENT [Concomitant]
  5. TRAZODONE HCL [Concomitant]
  6. ACETAMINOPHEN [Concomitant]
  7. ATORVASTATIN CALCIUM [Concomitant]
  8. ESOMEPRAZOLE MAGNESIUM [Concomitant]
  9. ASPIRIN [Concomitant]
  10. GABAPENTIN [Concomitant]
  11. RAMIPRIL [Concomitant]
  12. FUROSEMIDE [Concomitant]
  13. SPIRONOLACTONE [Concomitant]
  14. CARVEDILOL [Concomitant]
  15. GLYBURIDE [Concomitant]
  16. HUMULIN R [Concomitant]
  17. NORMAL SALINE [Concomitant]

REACTIONS (3)
  - BLOOD CREATININE INCREASED [None]
  - NEPHROPATHY TOXIC [None]
  - POST PROCEDURAL COMPLICATION [None]
